FAERS Safety Report 9593153 (Version 1)
Quarter: 2013Q3

REPORT INFORMATION
  Report Type: Spontaneous
  Country: US (occurrence: None)
  Receive Date: 20130930
  Receipt Date: 20130930
  Transmission Date: 20140515
  Serious: No
  Sender: FDA-Public Use
  Company Number: 1000046521

PATIENT
  Age: 86 Year
  Sex: Female

DRUGS (2)
  1. LINZESS [Suspect]
     Indication: IRRITABLE BOWEL SYNDROME
     Dosage: 145 MCG, 1 IN 1 D0
     Route: 048
     Dates: start: 20130705, end: 20130705
  2. PLAVIX [Concomitant]

REACTIONS (3)
  - Dizziness [None]
  - Tinnitus [None]
  - Tremor [None]
